FAERS Safety Report 5443657-9 (Version None)
Quarter: 2007Q3

REPORT INFORMATION
  Report Type: 
  Country: None (occurrence: None)
  Receive Date: 20070905
  Receipt Date: 20070829
  Transmission Date: 20080115
  Serious: Yes (Congenital Anomaly)
  Sender: FDA-Public Use
  Company Number: HQWYE234226JUL07

PATIENT
  Sex: Male
  Weight: 2.72 kg

DRUGS (4)
  1. EFFEXOR XR [Suspect]
     Indication: PANIC DISORDER
     Route: 064
     Dates: end: 20070716
  2. VITAMINS [Concomitant]
     Dosage: 2 DAILY
     Route: 064
  3. OMEGA 3 [Concomitant]
     Route: 064
  4. PROGESTERONE [Concomitant]
     Dosage: UNKNOWN
     Route: 064

REACTIONS (2)
  - CONGENITAL HYPOTHYROIDISM [None]
  - DRUG EXPOSURE DURING PREGNANCY [None]
